FAERS Safety Report 6008891-8 (Version None)
Quarter: 2008Q4

REPORT INFORMATION
  Report Type: 
  Country: None (occurrence: None)
  Receive Date: 20081217
  Receipt Date: 20081217
  Transmission Date: 20090506
  Serious: Yes (Hospitalization)
  Sender: FDA-Public Use
  Company Number: None

PATIENT
  Sex: Male
  Weight: 188.6 kg

DRUGS (9)
  1. DASATINIB [Suspect]
     Indication: MALIGNANT MELANOMA
     Dosage: 50 MG 2 X DAILY
     Dates: start: 20081031, end: 20081209
  2. DACARBAZINE [Suspect]
     Indication: MALIGNANT MELANOMA
     Dosage: 1000MG.M2 EVERY 3 WKS
     Dates: start: 20081030, end: 20081120
  3. MULTI-VITAMIN [Concomitant]
  4. HYDROCODONE [Concomitant]
  5. ZOFRAN [Concomitant]
  6. COMPAZINE [Concomitant]
  7. FENTANYL-100 [Concomitant]
  8. DULCOLAX [Concomitant]
  9. SENOKOT [Concomitant]

REACTIONS (6)
  - ASCITES [None]
  - CONSTIPATION [None]
  - DISEASE PROGRESSION [None]
  - LYMPHOEDEMA [None]
  - PLEURAL EFFUSION [None]
  - WHITE BLOOD CELL COUNT INCREASED [None]
